FAERS Safety Report 17251036 (Version 1)
Quarter: 2019Q4

REPORT INFORMATION
  Report Type: Spontaneous
  Country: US (occurrence: US)
  Receive Date: 20191214
  Receipt Date: 20191214
  Transmission Date: 20200122
  Serious: Yes (Hospitalization)
  Sender: FDA-Public Use
  Company Number: None

PATIENT
  Age: 63 Year
  Sex: Female

DRUGS (1)
  1. WARFARIN ( WARFARIN NA (EXELAN) 5MG TAB) [Suspect]
     Active Substance: WARFARIN
     Indication: ATRIAL FIBRILLATION
     Dates: start: 20160516, end: 20191121

REACTIONS (3)
  - Haemorrhage [None]
  - International normalised ratio abnormal [None]
  - Pneumonia [None]

NARRATIVE: CASE EVENT DATE: 20191121
